FAERS Safety Report 12289520 (Version 1)
Quarter: 2016Q2

REPORT INFORMATION
  Report Type: Spontaneous
  Country: US (occurrence: None)
  Receive Date: 20160420
  Receipt Date: 20160420
  Transmission Date: 20160815
  Serious: Yes (Life-Threatening, Hospitalization, Disabling, Other)
  Sender: FDA-Public Use
  Company Number: None

PATIENT
  Age: 60 Year
  Sex: Male
  Weight: 74.84 kg

DRUGS (5)
  1. EYE DROPS [Concomitant]
     Active Substance: TETRAHYDROZOLINE HYDROCHLORIDE
  2. SLEEPING PILLS [Concomitant]
     Active Substance: UNSPECIFIED INGREDIENT
  3. CALCIUM [Concomitant]
     Active Substance: CALCIUM
  4. MULTIVITAMIN [Concomitant]
     Active Substance: VITAMINS
  5. CIPROFLOXACIN. [Suspect]
     Active Substance: CIPROFLOXACIN
     Indication: STAPHYLOCOCCAL INFECTION
     Dosage: 1 @ 12 HOURS TWICE DAILY MOUTH
     Route: 048
     Dates: start: 20060626, end: 20060902

REACTIONS (4)
  - Staphylococcal infection [None]
  - Osteomyelitis [None]
  - Muscle atrophy [None]
  - Impaired driving ability [None]

NARRATIVE: CASE EVENT DATE: 20060626
